FAERS Safety Report 21375864 (Version 1)
Quarter: 2022Q3

REPORT INFORMATION
  Report Type: Spontaneous
  Country: FR (occurrence: FR)
  Receive Date: 20220926
  Receipt Date: 20220926
  Transmission Date: 20221026
  Serious: Yes (Hospitalization)
  Sender: FDA-Public Use
  Company Number: None

PATIENT
  Age: 16 Year
  Sex: Female

DRUGS (1)
  1. VANCOMYCIN [Suspect]
     Active Substance: VANCOMYCIN
     Indication: Skin infection
     Dosage: UNK
     Route: 042
     Dates: start: 20220806, end: 20220806

REACTIONS (3)
  - Acute kidney injury [Unknown]
  - Vomiting [Unknown]
  - Wrong rate [Unknown]

NARRATIVE: CASE EVENT DATE: 20220806
